FAERS Safety Report 19967405 (Version 1)
Quarter: 2021Q4

REPORT INFORMATION
  Report Type: Spontaneous
  Country: SI (occurrence: SI)
  Receive Date: 20211019
  Receipt Date: 20211019
  Transmission Date: 20220304
  Serious: Yes (Other)
  Sender: FDA-Public Use
  Company Number: SI-002147023-NVSC2021SI229331

PATIENT
  Age: 63 Year
  Sex: Male

DRUGS (6)
  1. LUCENTIS [Suspect]
     Active Substance: RANIBIZUMAB
     Indication: Product used for unknown indication
     Dosage: 55 ETDRS
     Route: 058
     Dates: start: 20200604
  2. LUCENTIS [Suspect]
     Active Substance: RANIBIZUMAB
     Dosage: 61 ETDRS
     Route: 058
     Dates: start: 20200806
  3. LUCENTIS [Suspect]
     Active Substance: RANIBIZUMAB
     Dosage: 57 ETDRS
     Route: 058
     Dates: start: 20200924
  4. LUCENTIS [Suspect]
     Active Substance: RANIBIZUMAB
     Dosage: 72 ETDRS
     Route: 058
     Dates: start: 20210210
  5. LUCENTIS [Suspect]
     Active Substance: RANIBIZUMAB
     Dosage: 69 ETDRS
     Route: 058
     Dates: start: 20210520
  6. LUCENTIS [Suspect]
     Active Substance: RANIBIZUMAB
     Dosage: 66 ETDRS
     Route: 058
     Dates: start: 20210624

REACTIONS (7)
  - Choroidal neovascularisation [Unknown]
  - Subretinal fluid [Unknown]
  - Detachment of macular retinal pigment epithelium [Unknown]
  - Retinal pigment epitheliopathy [Unknown]
  - Drug ineffective [Unknown]
  - Lens disorder [Unknown]
  - Visual impairment [Unknown]
